FAERS Safety Report 13317186 (Version 1)
Quarter: 2017Q1

REPORT INFORMATION
  Report Type: Spontaneous
  Country: DE (occurrence: DE)
  Receive Date: 20170310
  Receipt Date: 20170310
  Transmission Date: 20170428
  Serious: Yes (Other)
  Sender: FDA-Public Use
  Company Number: DE-SUN PHARMACEUTICAL INDUSTRIES LTD-2017RR-135573

PATIENT
  Sex: Male

DRUGS (1)
  1. CIPRO [Suspect]
     Active Substance: CIPROFLOXACIN HYDROCHLORIDE
     Indication: PRODUCT USED FOR UNKNOWN INDICATION
     Dosage: UNK
     Route: 048

REACTIONS (20)
  - Eosinophilia [Unknown]
  - Vitreous opacities [Unknown]
  - Arthritis [Unknown]
  - Connective tissue disorder [Unknown]
  - Dyspepsia [Unknown]
  - Chronic gastritis [Unknown]
  - Pain [Unknown]
  - Leukocytosis [Unknown]
  - Seizure [Unknown]
  - Thrombocytosis [Unknown]
  - Back pain [Unknown]
  - Neuropathy peripheral [Unknown]
  - Tinnitus [Unknown]
  - Pain in extremity [Unknown]
  - Gastrooesophageal reflux disease [Unknown]
  - Muscle spasms [Unknown]
  - Musculoskeletal pain [Unknown]
  - Chest pain [Unknown]
  - Arthralgia [Unknown]
  - Muscle tightness [Unknown]
